FAERS Safety Report 12437978 (Version 1)
Quarter: 2016Q2

REPORT INFORMATION
  Report Type: Spontaneous
  Country: US (occurrence: None)
  Receive Date: 20160603
  Receipt Date: 20160603
  Transmission Date: 20160815
  Serious: No
  Sender: FDA-Public Use
  Company Number: None

PATIENT
  Age: 42 Year
  Sex: Female

DRUGS (1)
  1. FORTEO [Suspect]
     Active Substance: TERIPARATIDE
     Indication: BONE DENSITY DECREASED
     Route: 058
     Dates: start: 20151110

REACTIONS (4)
  - Incorrect dose administered by device [None]
  - Dizziness [None]
  - Hypertension [None]
  - Nausea [None]

NARRATIVE: CASE EVENT DATE: 20160531
